FAERS Safety Report 6003046-5 (Version None)
Quarter: 2008Q4

REPORT INFORMATION
  Report Type: 
  Country: None (occurrence: None)
  Receive Date: 20081215
  Receipt Date: 20081203
  Transmission Date: 20090506
  Serious: Yes (Other)
  Sender: FDA-Public Use
  Company Number: MY-PFIZER INC-2008098996

PATIENT
  Age: 38 Year
  Sex: Female

DRUGS (4)
  1. INFLUENZA VACCINE [Suspect]
     Dosage: UNK
     Route: 042
     Dates: start: 20060421
  2. METRONIDAZOLE [Concomitant]
     Dosage: 400 MG, 2X/DAY
     Route: 048
  3. VIBRAMICINA [Concomitant]
     Dosage: 100 MG, 2X/DAY
     Route: 048
  4. UNASYN [Suspect]
     Dosage: 375 MG, 2X/DAY
     Route: 048

REACTIONS (1)
  - URTICARIA [None]
